APPROVED DRUG PRODUCT: LIDOCAINE HYDROCHLORIDE
Active Ingredient: LIDOCAINE HYDROCHLORIDE
Strength: 2%
Dosage Form/Route: SOLUTION;ORAL
Application: A040014 | Product #001
Applicant: HIKMA PHARMACEUTICALS USA INC
Approved: Jul 10, 1995 | RLD: No | RS: No | Type: DISCN